FAERS Safety Report 16464489 (Version 1)
Quarter: 2019Q2

REPORT INFORMATION
  Report Type: Spontaneous
  Country: US (occurrence: US)
  Receive Date: 20190621
  Receipt Date: 20190621
  Transmission Date: 20190711
  Serious: Yes (Other)
  Sender: FDA-Public Use
  Company Number: US-MYLANLABS-2019M1057592

PATIENT
  Age: 35 Year
  Sex: Male

DRUGS (3)
  1. GATIFLOXACIN. [Concomitant]
     Active Substance: GATIFLOXACIN
     Dosage: QID BOTH EYES
     Route: 050
  2. LATANOPROST. [Concomitant]
     Active Substance: LATANOPROST
     Indication: INTRAOCULAR PRESSURE INCREASED
     Dosage: BOTH EYES
     Route: 050
  3. PREDNISOLONE. [Suspect]
     Active Substance: PREDNISOLONE
     Indication: PRODUCT USED FOR UNKNOWN INDICATION
     Route: 047

REACTIONS (7)
  - Keratitis [Recovered/Resolved]
  - Corneal oedema [Recovered/Resolved]
  - Intentional product misuse [Unknown]
  - Intraocular pressure increased [Recovered/Resolved]
  - Astigmatism [Recovered/Resolved]
  - Condition aggravated [Recovered/Resolved]
  - Visual impairment [Recovered/Resolved]
